FAERS Safety Report 8612213-3 (Version None)
Quarter: 2012Q3

REPORT INFORMATION
  Report Type: 
  Country: None (occurrence: None)
  Receive Date: 20120813
  Receipt Date: 20120813
  Transmission Date: 20120928
  Serious: No
  Sender: FDA-Public Use
  Company Number: None

PATIENT
  Sex: Male

DRUGS (1)
  1. AZITHROMYCIN [Suspect]
     Dosage: 7ML MON, WED + FRI ORAL FOR 30 DAYS
     Dates: start: 20120709, end: 20120801

REACTIONS (2)
  - HYPERSENSITIVITY [None]
  - GENERALISED OEDEMA [None]
